FAERS Safety Report 6518165-4 (Version None)
Quarter: 2009Q4

REPORT INFORMATION
  Report Type: 
  Country: None (occurrence: None)
  Receive Date: 20091223
  Receipt Date: 20091223
  Transmission Date: 20100525
  Serious: Yes (Other)
  Sender: FDA-Public Use
  Company Number: None

PATIENT
  Age: 47 Year
  Sex: Female
  Weight: 52.1637 kg

DRUGS (3)
  1. PRISTIQ [Suspect]
     Indication: DEPRESSION
     Dosage: 50MG 1XDAILY  SINCE ON THE MARKET
     Dates: start: 20070720, end: 20091220
  2. LAMICTAL [Suspect]
     Indication: BIPOLAR DISORDER
     Dosage: 100 1XDAILY PRESENT
     Dates: start: 19950719, end: 20091220
  3. EFFEROR [Concomitant]

REACTIONS (3)
  - DYSGRAPHIA [None]
  - HEADACHE [None]
  - MEMORY IMPAIRMENT [None]
